FAERS Safety Report 23838772 (Version 1)
Quarter: 2024Q2

REPORT INFORMATION
  Report Type: Report from Study
  Country: US (occurrence: US)
  Receive Date: 20240509
  Receipt Date: 20240509
  Transmission Date: 20240716
  Serious: Yes (Hospitalization, Other)
  Sender: FDA-Public Use
  Company Number: US-VERTEX PHARMACEUTICALS-2023-003651

PATIENT
  Age: 30 Year
  Sex: Male

DRUGS (7)
  1. TRIKAFTA [Suspect]
     Active Substance: ELEXACAFTOR\IVACAFTOR\TEZACAFTOR
     Indication: Cystic fibrosis
     Dosage: 2 ORANGE TABS IN AM, 1 BLUE TAB IN PM
     Route: 048
     Dates: start: 20201123
  2. CALCITRIOL [Concomitant]
     Active Substance: CALCITRIOL
  3. CARVEDILOL [Concomitant]
     Active Substance: CARVEDILOL
  4. DOXAZOSIN [Concomitant]
     Active Substance: DOXAZOSIN MESYLATE
  5. HUMALOG [Concomitant]
     Active Substance: INSULIN LISPRO
     Dosage: 100 U/ML
  6. SEVELAMER [Concomitant]
     Active Substance: SEVELAMER
  7. VERAPAMIL [Concomitant]
     Active Substance: VERAPAMIL HYDROCHLORIDE
     Dosage: VERAPAMIL ER

REACTIONS (4)
  - Renal failure [Recovered/Resolved]
  - Seizure [Recovered/Resolved]
  - Hypoglycaemia [Recovered/Resolved]
  - Renal transplant [Recovered/Resolved]

NARRATIVE: CASE EVENT DATE: 20230215
